FAERS Safety Report 17832468 (Version 2)
Quarter: 2020Q2

REPORT INFORMATION
  Report Type: Spontaneous
  Country: BR (occurrence: BR)
  Receive Date: 20200528
  Receipt Date: 20200603
  Transmission Date: 20200714
  Serious: Yes (Other)
  Sender: FDA-Public Use
  Company Number: BR-TEVA-2020-BR-1240828

PATIENT
  Age: 71 Year
  Sex: Female
  Weight: 52 kg

DRUGS (1)
  1. TEVAOXALI [Suspect]
     Active Substance: OXALIPLATIN
     Indication: ADENOCARCINOMA OF COLON
     Dosage: 128.35 MILLIGRAM DAILY;
     Route: 065
     Dates: start: 20200511

REACTIONS (5)
  - Respiratory distress [Recovered/Resolved]
  - Hypertension [Recovered/Resolved]
  - Oxygen saturation decreased [Recovered/Resolved]
  - Tachycardia [Recovered/Resolved]
  - Laryngospasm [Recovered/Resolved]

NARRATIVE: CASE EVENT DATE: 20200511
